FAERS Safety Report 4506314-9 (Version None)
Quarter: 2004Q4

REPORT INFORMATION
  Report Type: 
  Country: None (occurrence: None)
  Receive Date: 20041025
  Receipt Date: 20031113
  Transmission Date: 20050328
  Serious: Yes (Death)
  Sender: FDA-Public Use
  Company Number: US-JNJFOC-20031102767

PATIENT
  Age: 73 Year
  Sex: Male

DRUGS (2)
  1. REMICADE [Suspect]
     Indication: TEMPORAL ARTERITIS
     Dosage: INTRAVENOUS
     Route: 042
  2. PREDNISONE [Concomitant]

REACTIONS (1)
  - COCCIDIOIDOMYCOSIS [None]
